FAERS Safety Report 16384598 (Version 1)
Quarter: 2019Q3

REPORT INFORMATION
  Report Type: Spontaneous
  Country: AU (occurrence: AU)
  Receive Date: 20190531
  Receipt Date: 20190531
  Transmission Date: 20191004
  Serious: Yes (Disabling)
  Sender: FDA-Public Use
  Company Number: None

PATIENT
  Age: 51 Year
  Sex: Female
  Weight: 55 kg

DRUGS (1)
  1. LAMOTRIGINE. [Suspect]
     Active Substance: LAMOTRIGINE
     Indication: DEPRESSION
     Dates: start: 20190417, end: 20190528

REACTIONS (18)
  - Nausea [None]
  - Feeling abnormal [None]
  - Anger [None]
  - Migraine [None]
  - Cognitive disorder [None]
  - Tinnitus [None]
  - Vertigo [None]
  - Agitation [None]
  - Amnesia [None]
  - Rash [None]
  - Suicidal ideation [None]
  - Disturbance in attention [None]
  - Withdrawal syndrome [None]
  - Dizziness [None]
  - Anxiety [None]
  - Mouth ulceration [None]
  - Headache [None]
  - Depression [None]

NARRATIVE: CASE EVENT DATE: 20190529
